FAERS Safety Report 4625457-2 (Version None)
Quarter: 2005Q2

REPORT INFORMATION
  Report Type: 
  Country: None (occurrence: None)
  Receive Date: 20050401
  Receipt Date: 20030411
  Transmission Date: 20051028
  Serious: Yes (Life-Threatening, Hospitalization)
  Sender: FDA-Public Use
  Company Number: US-BOEHRINGER INGELHEIM PHARMACEUTICALS, INC.-2003-BP-02282BP

PATIENT
  Sex: Male
  Weight: 73.5 kg

DRUGS (13)
  1. MICARDIS [Suspect]
     Indication: CARDIOVASCULAR DISORDER
     Route: 048
     Dates: start: 20030301, end: 20030409
  2. MICARDIS [Suspect]
     Indication: CEREBROVASCULAR ACCIDENT PROPHYLAXIS
  3. RAMIPRIL [Suspect]
     Indication: PROPHYLAXIS
     Route: 048
     Dates: start: 20030301, end: 20030409
  4. RAMIPRIL [Suspect]
     Indication: CEREBROVASCULAR ACCIDENT PROPHYLAXIS
  5. AMITRIPTYLINE [Concomitant]
  6. CARBIDOPA [Concomitant]
  7. LEVODOPA [Concomitant]
  8. DIGOXIN [Concomitant]
  9. FINASTERIDE [Concomitant]
  10. PRAMIPEXOLE [Concomitant]
  11. TERASOZIN [Concomitant]
  12. RABEPRAZOLE SODIUM [Concomitant]
  13. WARFARIN SODIUM [Concomitant]

REACTIONS (10)
  - ACIDOSIS [None]
  - ACUTE PRERENAL FAILURE [None]
  - AORTIC VALVE INCOMPETENCE [None]
  - BRADYCARDIA [None]
  - CARDIOACTIVE DRUG LEVEL INCREASED [None]
  - HYPERKALAEMIA [None]
  - HYPOTENSION [None]
  - MITRAL VALVE INCOMPETENCE [None]
  - TRICUSPID VALVE INCOMPETENCE [None]
  - VENTRICULAR HYPERTROPHY [None]
